FAERS Safety Report 8792043 (Version 1)
Quarter: 2012Q4

REPORT INFORMATION
  Report Type: 
  Country: NL (occurrence: NL)
  Receive Date: 20120918
  Receipt Date: 20120918
  Transmission Date: 20130627
  Serious: Yes (Other)
  Sender: FDA-Public Use
  Company Number: NL-JNJFOC-20120905933

PATIENT
  Age: 50 Year
  Sex: Female

DRUGS (4)
  1. HALDOL [Suspect]
     Indication: PRODUCT USED FOR UNKNOWN INDICATION
     Route: 048
     Dates: start: 1998
  2. HALDOL [Suspect]
     Indication: FEAR
     Route: 048
     Dates: start: 1998
  3. HALDOL [Suspect]
     Indication: AGORAPHOBIA
     Route: 048
     Dates: start: 1998
  4. HALDOL [Suspect]
     Indication: ANXIETY
     Route: 048
     Dates: start: 1998

REACTIONS (5)
  - Dyspnoea [Unknown]
  - Motor dysfunction [Unknown]
  - Hypersensitivity [Unknown]
  - Muscular weakness [Unknown]
  - Muscle rigidity [Unknown]
